FAERS Safety Report 26138929 (Version 2)
Quarter: 2025Q4

REPORT INFORMATION
  Report Type: Report from Study
  Country: US (occurrence: US)
  Receive Date: 20251210
  Receipt Date: 20251217
  Transmission Date: 20260117
  Serious: Yes (Other)
  Sender: ABBVIE
  Company Number: US-ABBVIE-6579201

PATIENT
  Age: 63 Year
  Sex: Female

DRUGS (2)
  1. RINVOQ [Suspect]
     Active Substance: UPADACITINIB
     Indication: Rheumatoid arthritis
     Route: 048
     Dates: start: 20250930
  2. RINVOQ [Suspect]
     Active Substance: UPADACITINIB
     Indication: Rheumatoid arthritis
     Route: 048
     Dates: start: 2025

REACTIONS (12)
  - Spinal operation [Unknown]
  - Stomatitis [Unknown]
  - Acne [Not Recovered/Not Resolved]
  - Musculoskeletal stiffness [Unknown]
  - Sinusitis [Unknown]
  - Arthralgia [Unknown]
  - Sinusitis [Unknown]
  - Hyperhidrosis [Unknown]
  - Dry mouth [Unknown]
  - Stomatitis [Unknown]
  - Mouth injury [Unknown]
  - Nasopharyngitis [Unknown]

NARRATIVE: CASE EVENT DATE: 20250101
